FAERS Safety Report 9633999 (Version 3)
Quarter: 2013Q4

REPORT INFORMATION
  Report Type: Spontaneous
  Country: FR (occurrence: FR)
  Receive Date: 20131021
  Receipt Date: 20131104
  Transmission Date: 20140711
  Serious: Yes (Hospitalization, Disabling)
  Sender: FDA-Public Use
  Company Number: FR-009507513-1009FRA00125

PATIENT
  Sex: Female

DRUGS (4)
  1. TIENAM IV [Suspect]
     Indication: OSTEITIS
     Dosage: 500 MG, BID
     Route: 042
     Dates: start: 20100408
  2. TIENAM IV [Suspect]
     Dosage: UNK
     Route: 042
     Dates: start: 20100702, end: 20100709
  3. TYGACIL [Suspect]
     Indication: OSTEITIS
     Dosage: 50 MG, BID
     Route: 042
     Dates: start: 20100408, end: 20100702
  4. FOSFOCINA [Suspect]
     Indication: OSTEITIS
     Dosage: 4 G, Q4D
     Route: 042
     Dates: start: 20100408, end: 20100702

REACTIONS (1)
  - Peripheral sensorimotor neuropathy [Unknown]
